FAERS Safety Report 10136871 (Version 2)
Quarter: 2014Q2

REPORT INFORMATION
  Report Type: Spontaneous
  Country: DE (occurrence: DE)
  Receive Date: 20140429
  Receipt Date: 20140612
  Transmission Date: 20141212
  Serious: Yes (Hospitalization, Other)
  Sender: FDA-Public Use
  Company Number: DE-AMGEN-DEUSP2014029829

PATIENT
  Sex: Female

DRUGS (2)
  1. NPLATE [Suspect]
     Indication: IMMUNE THROMBOCYTOPENIC PURPURA
     Dosage: 500 MUG, 2 TIMES/WK
     Route: 065
  2. AZATHIOPRIN [Concomitant]

REACTIONS (6)
  - Urinary tract infection [Recovering/Resolving]
  - Haemorrhage [Unknown]
  - Ear haemorrhage [Unknown]
  - Splenectomy [Unknown]
  - Platelet count decreased [Unknown]
  - Bone marrow reticulin fibrosis [Unknown]
